FAERS Safety Report 18580853 (Version 1)
Quarter: 2020Q4

REPORT INFORMATION
  Report Type: Report from Study
  Country: US (occurrence: US)
  Receive Date: 20201204
  Receipt Date: 20201204
  Transmission Date: 20210114
  Serious: Yes (Death, Other)
  Sender: FDA-Public Use
  Company Number: US-PFIZER INC-2020478155

PATIENT
  Age: 82 Year
  Sex: Female

DRUGS (2)
  1. GEMCITABINE HYDROCHLORIDE. [Suspect]
     Active Substance: GEMCITABINE HYDROCHLORIDE
     Indication: NON-SMALL CELL LUNG CANCER
     Dosage: ON DAYS 1, AND 8, WITH CYCLES REPEATED EVERY 21 DAYS
     Route: 042
  2. VINORELBINE [Suspect]
     Active Substance: VINORELBINE TARTRATE
     Indication: NON-SMALL CELL LUNG CANCER
     Dosage: 25 MG/M2, CYCLIC (OVER 6 MIN ON DAYS 1, AND 8, WITH CYCLES REPEATED EVERY 21 DAYS)
     Route: 042

REACTIONS (2)
  - Febrile neutropenia [Unknown]
  - Neutropenic sepsis [Fatal]
